FAERS Safety Report 13984031 (Version 2)
Quarter: 2017Q4

REPORT INFORMATION
  Report Type: Spontaneous
  Country: US (occurrence: US)
  Receive Date: 20170918
  Receipt Date: 20171215
  Transmission Date: 20180321
  Serious: No
  Sender: FDA-Public Use
  Company Number: US-TEVA-804173USA

PATIENT
  Sex: Male

DRUGS (3)
  1. DORZOLAMIDE HYDROCHLORIDE / TIMOLOL MALEATE [Suspect]
     Active Substance: DORZOLAMIDE HYDROCHLORIDE\TIMOLOL MALEATE
     Indication: MACULAR DEGENERATION
  2. DORZOLAMIDE HYDROCHLORIDE / TIMOLOL MALEATE [Suspect]
     Active Substance: DORZOLAMIDE HYDROCHLORIDE\TIMOLOL MALEATE
     Indication: GLAUCOMA
     Dosage: 2/0.5%; DORZOLAMIDE 20 MG + TIMOLOL 5 MG
     Dates: start: 20150825
  3. DORZOLAMIDE HYDROCHLORIDE / TIMOLOL MALEATE [Suspect]
     Active Substance: DORZOLAMIDE HYDROCHLORIDE\TIMOLOL MALEATE
     Indication: INTRAOCULAR PRESSURE TEST

REACTIONS (5)
  - Headache [Unknown]
  - Vision blurred [Unknown]
  - Eye pain [Unknown]
  - Ocular hyperaemia [Unknown]
  - Paraesthesia [Unknown]

NARRATIVE: CASE EVENT DATE: 20170825
